FAERS Safety Report 24350858 (Version 1)
Quarter: 2024Q3

REPORT INFORMATION
  Report Type: Spontaneous
  Country: US (occurrence: None)
  Receive Date: 20240920
  Receipt Date: 20240920
  Transmission Date: 20241016
  Serious: Yes (Life-Threatening, Hospitalization)
  Sender: Public
  Company Number: None

PATIENT
  Sex: 0

DRUGS (1)
  1. NULECIT [Suspect]
     Active Substance: SODIUM FERRIC GLUCONATE COMPLEX
     Indication: Iron deficiency anaemia
     Route: 041
     Dates: start: 20240920, end: 20240920

REACTIONS (3)
  - Blood pressure systolic decreased [None]
  - Presyncope [None]
  - Vomiting [None]

NARRATIVE: CASE EVENT DATE: 20240920
